FAERS Safety Report 9232103 (Version 9)
Quarter: 2013Q4

REPORT INFORMATION
  Report Type: Spontaneous
  Country: US (occurrence: US)
  Receive Date: 20130415
  Receipt Date: 20131014
  Transmission Date: 20140711
  Serious: Yes (Hospitalization)
  Sender: FDA-Public Use
  Company Number: US-PFIZER INC-2013114227

PATIENT
  Age: 89 Year
  Sex: Female
  Weight: 76.19 kg

DRUGS (25)
  1. SUTENT [Suspect]
     Indication: RENAL CELL CARCINOMA
     Dosage: 37.5 MG, 1X/DAY
     Route: 048
     Dates: start: 201302
  2. SUTENT [Suspect]
     Dosage: 50 MG, ONCE DAILY
     Route: 048
     Dates: start: 20130313, end: 20130410
  3. SUTENT [Suspect]
     Dosage: 37.5 MG, ONCE DAILY (FOR 4 WEEKS ON AND 2 WEEKS OFF)
     Route: 048
  4. SUTENT [Suspect]
     Dosage: 37.5 MG, CYCLIC (2 WEEKS ON AND 1 WEEK OFF)
  5. SUTENT [Suspect]
     Dosage: 37.5 MG, 1X/DAY
     Route: 048
     Dates: end: 20130708
  6. PLAVIX [Suspect]
     Dosage: UNK
  7. ALBUTEROL [Concomitant]
     Dosage: UNK
     Route: 055
  8. ALBUTEROL [Concomitant]
     Dosage: UNK, AS NEEDED
  9. IMDUR [Concomitant]
     Dosage: 90 MG, UNK
  10. ASA [Concomitant]
     Dosage: 81 MG, UNK
  11. METOPROLOL [Concomitant]
     Dosage: 50 MG, UNK
  12. CALCIUM [Concomitant]
     Dosage: 500 MG, UNK
  13. FERROUS SULFATE [Concomitant]
     Dosage: UNK
  14. POTASSIUM [Concomitant]
     Dosage: 10 MG, UNK
  15. VITAMIN B12 [Concomitant]
     Dosage: 1000 MG, UNK
  16. HYDROCHLOROTHIAZIDE [Concomitant]
     Dosage: 50 MG, UNK
  17. TYLENOL [Concomitant]
     Dosage: UNK
  18. FOLIC ACID [Concomitant]
     Dosage: 1 MG, 1X/DAY
  19. HYDRALAZINE [Concomitant]
     Dosage: 50 MG, 2X/DAY
  20. LASIX [Concomitant]
     Dosage: 80 MG, 1X/DAY
  21. OSCAL [Concomitant]
     Dosage: UNK
  22. ZANTAC [Concomitant]
     Dosage: UNK
  23. MIACALCIN [Concomitant]
     Dosage: UNK
  24. KLOR-CON [Concomitant]
     Dosage: UNK
  25. ISOSORBIDE [Concomitant]
     Dosage: 30 MG, UNK

REACTIONS (18)
  - Cardiac failure congestive [Unknown]
  - Dehydration [Unknown]
  - Dyspnoea [Unknown]
  - Weight increased [Unknown]
  - Confusional state [Unknown]
  - Stomatitis [Unknown]
  - Anaemia [Unknown]
  - Hypogeusia [Unknown]
  - Dysgeusia [Unknown]
  - Local swelling [Recovered/Resolved]
  - Pain in extremity [Recovered/Resolved]
  - Platelet count decreased [Unknown]
  - Back pain [Unknown]
  - Haemorrhoids [Unknown]
  - Dysuria [Unknown]
  - Diet refusal [Unknown]
  - Disease progression [Unknown]
  - Renal cell carcinoma [Unknown]
